FAERS Safety Report 5448765-4 (Version None)
Quarter: 2007Q3

REPORT INFORMATION
  Report Type: 
  Country: None (occurrence: None)
  Receive Date: 20070911
  Receipt Date: 20070606
  Transmission Date: 20080115
  Serious: No
  Sender: FDA-Public Use
  Company Number: US-BRISTOL-MYERS SQUIBB COMPANY-13629589

PATIENT
  Age: 52 Year
  Sex: Female
  Weight: 59 kg

DRUGS (29)
  1. EMSAM [Suspect]
     Indication: DEPRESSION
     Dosage: 2 6MG/24HR PATCHES/DAY. HAD USED 9MG/24 HR PATCHES=NDC # 39506-044-01 LOT # 6P0025 EXP DATE 3/08
     Route: 062
     Dates: start: 20060901
  2. SYNTHROID [Concomitant]
     Indication: THYROID DISORDER
     Dosage: INITIAL DOSE 0.2MG FROM 21SEP06-22SEP06
     Route: 048
     Dates: start: 20060807
  3. PREMARIN [Concomitant]
     Route: 048
     Dates: start: 20060807
  4. HYDROCHLOROTHIAZIDE [Concomitant]
     Indication: BLOOD PRESSURE
     Dosage: DOSE INCREASED TO 25 MG/DAY 12-APR-2007
     Route: 048
     Dates: start: 20060807
  5. CLONAZEPAM [Concomitant]
     Indication: ANXIETY
     Dosage: INTIAL DOSE .5MG 3X/D
     Route: 048
     Dates: start: 20060630
  6. VICODIN [Concomitant]
     Indication: PAIN
     Dates: start: 20060826
  7. ROBAXIN [Concomitant]
     Indication: MUSCLE RELAXANT THERAPY
     Route: 048
     Dates: start: 20061024
  8. BENADRYL [Concomitant]
     Route: 048
  9. VALSARTAN [Concomitant]
     Indication: BLOOD PRESSURE
     Dosage: INITIAL DOSE 80MG FROM 7AUG06-22SEP06
     Dates: start: 20060807, end: 20061223
  10. METOPROLOL SUCCINATE [Concomitant]
     Dosage: INTIAL DOSE 100MG
     Route: 048
     Dates: start: 20060807
  11. ZOLPIDEM TARTRATE [Concomitant]
     Indication: INSOMNIA
     Route: 048
     Dates: start: 20061228
  12. MOXIFLOXACIN HCL [Concomitant]
     Indication: INFECTION
     Route: 048
     Dates: start: 20061222
  13. TEMAZEPAM [Concomitant]
     Indication: INSOMNIA
     Route: 048
     Dates: start: 20060630
  14. PROPOXYPHENE HCL AND ACETAMINOPHEN [Concomitant]
     Indication: PAIN
     Route: 048
     Dates: start: 20060630
  15. QUETIAPINE FUMARATE [Concomitant]
     Indication: NIGHTMARE
     Route: 048
     Dates: start: 20060828
  16. OXYCODONE HCL + ACETAMINOPHEN [Concomitant]
     Indication: PAIN
     Dates: start: 20060922
  17. CIPROFLOXACIN HCL [Concomitant]
     Indication: INFECTION
     Route: 048
     Dates: start: 20060922
  18. PROMETHAZINE [Concomitant]
     Indication: NAUSEA
     Route: 048
     Dates: start: 20060920
  19. PROMETHAZINE [Concomitant]
     Indication: VOMITING
     Route: 048
     Dates: start: 20060920
  20. MEPERIDINE HCL [Concomitant]
     Indication: PAIN
     Route: 030
     Dates: start: 20060920, end: 20061020
  21. AMOXICILLIN [Concomitant]
     Route: 048
     Dates: start: 20060919, end: 20061019
  22. AMOXICILLIN + CLAVULANATE POTASSIUM [Concomitant]
     Indication: INFECTION
     Dosage: 875/125MG
     Route: 048
  23. PRAZOSIN HCL [Concomitant]
     Indication: INSOMNIA
     Route: 048
     Dates: start: 20070329
  24. PRAZOSIN HCL [Concomitant]
     Indication: BLOOD PRESSURE
     Route: 048
     Dates: start: 20070329
  25. ETODOLAC [Concomitant]
     Indication: PAIN
     Dates: start: 20070221
  26. ETODOLAC [Concomitant]
     Indication: INFLAMMATION
     Dates: start: 20070221
  27. FLUNISOLIDE [Concomitant]
     Indication: SINUS CONGESTION
     Route: 045
     Dates: start: 20070216
  28. FLUNISOLIDE [Concomitant]
     Indication: EAR DISCOMFORT
     Route: 045
     Dates: start: 20070216
  29. CHLORDIAZEPOXIDE [Concomitant]
     Indication: ANXIETY

REACTIONS (6)
  - DERMATITIS CONTACT [None]
  - DRUG INEFFECTIVE [None]
  - DRUG SCREEN POSITIVE [None]
  - IRRITABILITY [None]
  - MUSCLE SPASMS [None]
  - TREMOR [None]
